FAERS Safety Report 8333715-3 (Version None)
Quarter: 2012Q1

REPORT INFORMATION
  Report Type: 
  Country: None (occurrence: None)
  Receive Date: 20120328
  Receipt Date: 20110121
  Transmission Date: 20120608
  Serious: Yes (Hospitalization, Other)
  Sender: FDA-Public Use
  Company Number: PHHY2011US05821

PATIENT
  Age: 68 Year
  Sex: Female

DRUGS (1)
  1. ZORTRESS [Suspect]
     Dosage: 0.75 MG, BID
     Dates: start: 20101119, end: 20110107

REACTIONS (1)
  - PNEUMONIA [None]
